FAERS Safety Report 6051361-1 (Version None)
Quarter: 2009Q1

REPORT INFORMATION
  Report Type: 
  Country: None (occurrence: None)
  Receive Date: 20090126
  Receipt Date: 20090114
  Transmission Date: 20090719
  Serious: Yes (Death, Hospitalization)
  Sender: FDA-Public Use
  Company Number: ES-PFIZER INC-2009150911

PATIENT

DRUGS (6)
  1. BESITRAN [Suspect]
     Indication: DEPRESSIVE SYMPTOM
     Dosage: 50 MG, 1X/DAY
     Route: 048
     Dates: start: 20060701, end: 20081004
  2. ACETYLSALICYLIC ACID [Interacting]
     Indication: ATRIAL FIBRILLATION
     Route: 048
     Dates: start: 20030101, end: 20081004
  3. ACENOCUMAROL [Interacting]
     Indication: CORONARY ANGIOPLASTY
     Dosage: UNK
     Route: 048
     Dates: start: 20060701, end: 20081004
  4. ATENOLOL [Concomitant]
     Route: 048
     Dates: end: 20081004
  5. PRAVASTATIN [Concomitant]
     Route: 048
     Dates: start: 20060101, end: 20081004
  6. OMEPRAZOLE [Concomitant]
     Route: 048
     Dates: end: 20081004

REACTIONS (2)
  - CEREBRAL HAEMATOMA [None]
  - DRUG INTERACTION [None]
